FAERS Safety Report 8395938 (Version 3)
Quarter: 2014Q1

REPORT INFORMATION
  Report Type: Spontaneous
  Country: US (occurrence: US)
  Receive Date: 20120208
  Receipt Date: 20140320
  Transmission Date: 20141002
  Serious: Yes (Hospitalization, Other)
  Sender: FDA-Public Use
  Company Number: US-BAYER-2012-012058

PATIENT
  Age: 38 Year
  Sex: Female
  Weight: 52 kg

DRUGS (5)
  1. YASMIN [Suspect]
     Dosage: UNK
     Dates: start: 200404, end: 200604
  2. YASMIN [Suspect]
     Dosage: UNK
     Dates: start: 200706, end: 200906
  3. CIPROFLOXACIN HCL [Concomitant]
     Dosage: 500 MG, UNK
  4. CELEXA [Concomitant]
     Dosage: 40 MG DAILY, UNK
     Route: 048
  5. LORAZEPAM [Concomitant]

REACTIONS (8)
  - Cholecystectomy [None]
  - Cholecystitis [None]
  - Injury [None]
  - Pain [None]
  - General physical health deterioration [None]
  - Anxiety [None]
  - Emotional distress [None]
  - Anhedonia [None]
